FAERS Safety Report 21108903 (Version 5)
Quarter: 2022Q4

REPORT INFORMATION
  Report Type: Report from Study
  Country: CO (occurrence: CO)
  Receive Date: 20220721
  Receipt Date: 20221228
  Transmission Date: 20230112
  Serious: Yes (Life-Threatening, Hospitalization, Other)
  Sender: FDA-Public Use
  Company Number: CO-ABBVIE-22K-036-4474904-00

PATIENT
  Sex: Female

DRUGS (2)
  1. HUMIRA [Suspect]
     Active Substance: ADALIMUMAB
     Indication: Rheumatoid arthritis
     Dosage: 40 MG
     Route: 058
     Dates: start: 20180305, end: 20220405
  2. FLUCONAZOLE [Concomitant]
     Active Substance: FLUCONAZOLE
     Indication: Fungal infection
     Route: 048
     Dates: start: 20221012, end: 20221028

REACTIONS (27)
  - Condition aggravated [Not Recovered/Not Resolved]
  - Discouragement [Not Recovered/Not Resolved]
  - Joint dislocation [Not Recovered/Not Resolved]
  - Discharge [Not Recovered/Not Resolved]
  - Wound complication [Not Recovered/Not Resolved]
  - Nausea [Recovering/Resolving]
  - Anaemia [Recovering/Resolving]
  - Illness [Not Recovered/Not Resolved]
  - Fungal infection [Not Recovered/Not Resolved]
  - Feeding disorder [Recovering/Resolving]
  - Bone fragmentation [Not Recovered/Not Resolved]
  - Hip surgery [Unknown]
  - General physical health deterioration [Not Recovered/Not Resolved]
  - Contusion [Not Recovered/Not Resolved]
  - Walking disability [Not Recovered/Not Resolved]
  - Arthropathy [Not Recovered/Not Resolved]
  - Seroma [Not Recovered/Not Resolved]
  - Post procedural haemorrhage [Not Recovered/Not Resolved]
  - Red blood cell count decreased [Not Recovered/Not Resolved]
  - Fall [Not Recovered/Not Resolved]
  - Infection [Not Recovered/Not Resolved]
  - Bedridden [Not Recovered/Not Resolved]
  - Hip arthroplasty [Unknown]
  - Dysstasia [Not Recovered/Not Resolved]
  - Limb operation [Unknown]
  - Rheumatoid arthritis [Not Recovered/Not Resolved]
  - Wound [Unknown]

NARRATIVE: CASE EVENT DATE: 20220101
